FAERS Safety Report 16065944 (Version 1)
Quarter: 2019Q2

REPORT INFORMATION
  Report Type: Spontaneous
  Country: US (occurrence: US)
  Receive Date: 20190312
  Receipt Date: 20190312
  Transmission Date: 20190711
  Serious: Yes (Other)
  Sender: FDA-Public Use
  Company Number: None

PATIENT
  Age: 69 Year
  Sex: Male
  Weight: 97.52 kg

DRUGS (2)
  1. TEMOZOLOMIDE. [Suspect]
     Active Substance: TEMOZOLOMIDE
     Indication: HEPATIC CANCER
     Dosage: ?          OTHER FREQUENCY:TOTAL IN 5 DAYS;?
     Route: 048
     Dates: start: 20171013
  2. TEMOZOLOMIDE. [Suspect]
     Active Substance: TEMOZOLOMIDE
     Indication: CHOLANGIOCARCINOMA
     Dosage: ?          OTHER FREQUENCY:TOTAL IN 5 DAYS;?
     Route: 048
     Dates: start: 20171013

REACTIONS (1)
  - Hospice care [None]
